FAERS Safety Report 14163028 (Version 2)
Quarter: 2017Q4

REPORT INFORMATION
  Report Type: Report from Study
  Country: US (occurrence: US)
  Receive Date: 20171106
  Receipt Date: 20171120
  Transmission Date: 20180321
  Serious: Yes (Hospitalization)
  Sender: FDA-Public Use
  Company Number: US-VERTEX PHARMACEUTICALS-2017-006098

PATIENT
  Sex: Male

DRUGS (1)
  1. KALYDECO [Suspect]
     Active Substance: IVACAFTOR
     Indication: CYSTIC FIBROSIS
     Dosage: 50 MG (FREQUENCY UNSPECIFIED)
     Route: 048
     Dates: start: 20171024

REACTIONS (2)
  - Decreased appetite [Recovered/Resolved]
  - Croup infectious [Recovering/Resolving]

NARRATIVE: CASE EVENT DATE: 2017
